FAERS Safety Report 13775702 (Version 1)
Quarter: 2017Q3

REPORT INFORMATION
  Report Type: Spontaneous
  Country: US (occurrence: US)
  Receive Date: 20170720
  Receipt Date: 20170720
  Transmission Date: 20171127
  Serious: Yes (Hospitalization, Other)
  Sender: FDA-Public Use
  Company Number: US-APOTEX-2017AP015554

PATIENT
  Age: 71 Year
  Sex: Male
  Weight: 80 kg

DRUGS (4)
  1. FOSPHENYTOIN SODIUM INJECTION USP [Suspect]
     Active Substance: FOSPHENYTOIN SODIUM
     Indication: SEIZURE
     Dosage: 1000 MG, 100 MG PE EVERY 8 HOUR
     Route: 042
  2. FOSPHENYTOIN SODIUM INJECTION USP [Suspect]
     Active Substance: FOSPHENYTOIN SODIUM
     Indication: CRANIOCEREBRAL INJURY
     Dosage: 500 MG, 160 MG PE EVERY 8 HOUR
     Route: 042
  3. LEVETIRACETAM. [Concomitant]
     Active Substance: LEVETIRACETAM
     Indication: SEIZURE
     Dosage: 500 MG, BID
     Route: 065
  4. LEVETIRACETAM. [Concomitant]
     Active Substance: LEVETIRACETAM
     Indication: CRANIOCEREBRAL INJURY
     Dosage: 1000 MG, EVERY 12 HOUR
     Route: 065

REACTIONS (2)
  - Anticonvulsant drug level above therapeutic [Recovering/Resolving]
  - Purple glove syndrome [Recovered/Resolved]
